FAERS Safety Report 15125646 (Version 1)
Quarter: 2018Q3

REPORT INFORMATION
  Report Type: Spontaneous
  Country: US (occurrence: US)
  Receive Date: 20180614
  Receipt Date: 20180614
  Transmission Date: 20181010
  Serious: Yes (Other)
  Sender: FDA-Public Use
  Company Number: None

PATIENT
  Age: 31 Year
  Sex: Female
  Weight: 53.55 kg

DRUGS (1)
  1. DOXYCYCLINE HYCLATE 100MG TABS, 100 MG SUN PHARMACEUTICALS [Suspect]
     Active Substance: DOXYCYCLINE HYCLATE
     Indication: LYME DISEASE
     Dosage: ?          QUANTITY:120 DF DOSAGE FORM;?
     Route: 048
     Dates: start: 20180406, end: 20180612

REACTIONS (1)
  - Intracranial pressure increased [None]

NARRATIVE: CASE EVENT DATE: 20180613
